FAERS Safety Report 6841586-7 (Version None)
Quarter: 2010Q3

REPORT INFORMATION
  Report Type: 
  Country: None (occurrence: None)
  Receive Date: 20100714
  Receipt Date: 20070706
  Transmission Date: 20110219
  Serious: No
  Sender: FDA-Public Use
  Company Number: US-PFIZER INC-2007058077

PATIENT
  Sex: Female
  Weight: 86.4 kg

DRUGS (4)
  1. CHANTIX [Suspect]
     Indication: SMOKING CESSATION THERAPY
     Dates: start: 20070630
  2. LEVOTHYROXINE SODIUM [Concomitant]
  3. BENICAR [Concomitant]
  4. ORAL CONTRACEPTIVE NOS [Concomitant]

REACTIONS (4)
  - ANXIETY [None]
  - CRYING [None]
  - FEAR [None]
  - NERVOUSNESS [None]
